FAERS Safety Report 24558838 (Version 1)
Quarter: 2024Q4

REPORT INFORMATION
  Report Type: Spontaneous
  Country: TR (occurrence: TR)
  Receive Date: 20241029
  Receipt Date: 20241029
  Transmission Date: 20250115
  Serious: Yes (Death, Other)
  Sender: ASTELLAS
  Company Number: TR-ASTELLAS-2024-AER-014754

PATIENT
  Age: 22 Year
  Sex: Female

DRUGS (6)
  1. XOSPATA [Interacting]
     Active Substance: GILTERITINIB
     Indication: Acute myeloid leukaemia
     Route: 065
  2. XOSPATA [Interacting]
     Active Substance: GILTERITINIB
     Indication: FLT3 gene mutation
     Route: 065
  3. VENETOCLAX [Interacting]
     Active Substance: VENETOCLAX
     Indication: Acute myeloid leukaemia
     Route: 065
  4. VENETOCLAX [Interacting]
     Active Substance: VENETOCLAX
     Indication: FLT3 gene mutation
  5. AZACITIDINE [Interacting]
     Active Substance: AZACITIDINE
     Indication: Acute myeloid leukaemia
     Route: 065
  6. AZACITIDINE [Interacting]
     Active Substance: AZACITIDINE
     Indication: FLT3 gene mutation

REACTIONS (8)
  - Infection [Fatal]
  - Cytopenia [Unknown]
  - Condition aggravated [Unknown]
  - Gastrointestinal haemorrhage [Unknown]
  - Condition aggravated [Unknown]
  - Product use issue [Unknown]
  - Off label use [Unknown]
  - Drug interaction [Unknown]
